FAERS Safety Report 5519340-8 (Version None)
Quarter: 2007Q4

REPORT INFORMATION
  Report Type: 
  Country: None (occurrence: None)
  Receive Date: 20071116
  Receipt Date: 20071108
  Transmission Date: 20080405
  Serious: Yes (Other)
  Sender: FDA-Public Use
  Company Number: US-BAYER-200713689BCC

PATIENT
  Sex: Male

DRUGS (5)
  1. ALEVE [Suspect]
     Indication: ARTHRALGIA
     Dosage: AS USED: 440-220 MG  UNIT DOSE: 220 MG
     Route: 048
  2. PREDNISONE TAB [Concomitant]
  3. HUMIRA [Concomitant]
  4. MICARDIS [Concomitant]
  5. CHOLESTEROLOFF [Concomitant]

REACTIONS (1)
  - FAECES DISCOLOURED [None]
